FAERS Safety Report 10476670 (Version 1)
Quarter: 2014Q3

REPORT INFORMATION
  Report Type: Spontaneous
  Country: GB (occurrence: None)
  Receive Date: 20140923
  Receipt Date: 20140923
  Transmission Date: 20150326
  Serious: Yes (Life-Threatening)
  Sender: FDA-Public Use
  Company Number: GB-H14001-14-00657

PATIENT
  Age: 4 Year
  Sex: Female

DRUGS (4)
  1. PHENYTOIN (PHENYTOIN) (UNKNOWN) (PHENYTOIN) [Suspect]
     Active Substance: PHENYTOIN
     Indication: CONVULSION
     Route: 041
     Dates: start: 20140901, end: 20140901
  2. CEFOTAXIME [Concomitant]
     Active Substance: CEFOTAXIME\CEFOTAXIME SODIUM
  3. LORAZEPAM. [Concomitant]
     Active Substance: LORAZEPAM
  4. ACICLOVIR [Concomitant]
     Active Substance: ACYCLOVIR

REACTIONS (3)
  - Wheezing [None]
  - Infusion site rash [None]
  - General physical health deterioration [None]

NARRATIVE: CASE EVENT DATE: 20140901
